FAERS Safety Report 5815593-7 (Version None)
Quarter: 2008Q3

REPORT INFORMATION
  Report Type: 
  Country: None (occurrence: None)
  Receive Date: 20080718
  Receipt Date: 20080707
  Transmission Date: 20090109
  Serious: Yes (Other)
  Sender: FDA-Public Use
  Company Number: US-PFIZER INC-2005000731

PATIENT
  Sex: Male
  Weight: 68.5 kg

DRUGS (3)
  1. XALATAN [Suspect]
     Indication: OPEN ANGLE GLAUCOMA
     Route: 047
  2. OPHTHALMOLOGICALS [Suspect]
     Indication: GLAUCOMA
  3. TIMOLOL MALEATE [Concomitant]

REACTIONS (17)
  - ADRENAL DISORDER [None]
  - BACK DISORDER [None]
  - BACK PAIN [None]
  - BLINDNESS [None]
  - BLINDNESS UNILATERAL [None]
  - CONSTIPATION [None]
  - EYE IRRITATION [None]
  - GLAUCOMA [None]
  - INTRAOCULAR PRESSURE INCREASED [None]
  - INTRAOCULAR PRESSURE TEST ABNORMAL [None]
  - OPTIC NERVE DISORDER [None]
  - OPTIC NERVE INJURY [None]
  - PHOTOPHOBIA [None]
  - REACTION TO PRESERVATIVES [None]
  - SINUS DISORDER [None]
  - UNEVALUABLE EVENT [None]
  - VENOUS THROMBOSIS [None]
